FAERS Safety Report 19969703 (Version 6)
Quarter: 2022Q1

REPORT INFORMATION
  Report Type: Spontaneous
  Country: DE (occurrence: DE)
  Receive Date: 20211019
  Receipt Date: 20220113
  Transmission Date: 20220423
  Serious: Yes (Death, Other)
  Sender: FDA-Public Use
  Company Number: DE-AMK-253746

PATIENT
  Age: 73 Year
  Sex: Female
  Weight: 81.2 kg

DRUGS (14)
  1. GABAPENTIN [Suspect]
     Active Substance: GABAPENTIN
     Dosage: 300 MG, TWICE A DAY
     Dates: start: 201403, end: 201505
  2. PANTOPRAZOLE SODIUM [Suspect]
     Active Substance: PANTOPRAZOLE SODIUM
     Dosage: 40 MG, ONCE DAILY
     Dates: start: 201403, end: 201505
  3. AMLODIPINE BESYLATE [Suspect]
     Active Substance: AMLODIPINE BESYLATE
     Dosage: 0.5 DF, TWICE A DAY
     Dates: start: 201309, end: 201505
  4. FENTANYL [Suspect]
     Active Substance: FENTANYL
     Dosage: 25 MG, EVERY 3 DAYS
     Route: 065
     Dates: start: 201407, end: 201505
  5. TORSEMIDE [Suspect]
     Active Substance: TORSEMIDE
     Dosage: 10 MG, ONCE DAILY
     Dates: start: 201310, end: 201505
  6. ASPIRIN [Suspect]
     Active Substance: ASPIRIN
     Dosage: 100 MG, ONCE DAILY
     Dates: start: 201308, end: 201505
  7. RAMIPRIL [Suspect]
     Active Substance: RAMIPRIL
     Dosage: 5 MG, TWICE A DAY
     Dates: start: 201308, end: 201505
  8. SIMVASTATIN [Suspect]
     Active Substance: SIMVASTATIN
     Dosage: 40 MG, ONCE DAILY
     Dates: start: 201401, end: 201505
  9. MOVICOL [Suspect]
     Active Substance: POLYETHYLENE GLYCOL 3350\POTASSIUM CHLORIDE\SODIUM BICARBONATE\SODIUM CHLORIDE
     Dosage: 1 DF, ONCE DAILY
     Dates: start: 201308, end: 201505
  10. ACTRAPHANE [Suspect]
     Active Substance: INSULIN HUMAN
     Indication: Type 2 diabetes mellitus
     Dosage: 18 - 8
     Dates: start: 201401, end: 201505
  11. BACLOFEN [Suspect]
     Active Substance: BACLOFEN
     Dosage: 62.5 MG (25MG 1 - 0.5 - 1)
     Dates: start: 201404, end: 201505
  12. XARELTO [Suspect]
     Active Substance: RIVAROXABAN
     Dosage: 15 MG, ONCE DAILY
     Dates: start: 201403, end: 201505
  13. FENTANYL [Suspect]
     Active Substance: FENTANYL
     Dosage: UNK
     Route: 065
     Dates: start: 201407, end: 201505
  14. FENTANYL CITRATE [Suspect]
     Active Substance: FENTANYL CITRATE
     Dosage: 25 MILLIGRAM, TID
     Dates: start: 201407, end: 201505

REACTIONS (32)
  - Sepsis [Fatal]
  - Sinusitis [Fatal]
  - Lactic acidosis [Fatal]
  - Dehydration [Fatal]
  - Pneumonia aspiration [Fatal]
  - Septic shock [Fatal]
  - Hyperglycaemia [Fatal]
  - Renal failure [Fatal]
  - Urosepsis [Fatal]
  - Escherichia infection [Unknown]
  - Enterococcal infection [Unknown]
  - Pyelonephritis [Unknown]
  - Aspartate aminotransferase increased [Unknown]
  - Activated partial thromboplastin time prolonged [Unknown]
  - Alanine aminotransferase increased [Unknown]
  - Blood alkaline phosphatase increased [Unknown]
  - Blood calcium decreased [Unknown]
  - Blood chloride increased [Unknown]
  - Blood lactate dehydrogenase increased [Unknown]
  - Blood potassium increased [Unknown]
  - C-reactive protein increased [Unknown]
  - Fibrin D dimer increased [Unknown]
  - Gamma-glutamyltransferase increased [Unknown]
  - Haemoglobin decreased [Unknown]
  - Mean cell haemoglobin concentration decreased [Recovered/Resolved]
  - Haematocrit increased [Unknown]
  - Prothrombin time prolonged [Unknown]
  - Red blood cell count increased [Recovered/Resolved]
  - White blood cell count increased [Recovered/Resolved]
  - Cystitis [Unknown]
  - Calculus bladder [Unknown]
  - Blood sodium decreased [Unknown]

NARRATIVE: CASE EVENT DATE: 20150101
